FAERS Safety Report 21727594 (Version 1)
Quarter: 2022Q4

REPORT INFORMATION
  Report Type: Report from Study
  Country: FR (occurrence: FR)
  Receive Date: 20221214
  Receipt Date: 20221214
  Transmission Date: 20230113
  Serious: Yes (Hospitalization, Other)
  Sender: FDA-Public Use
  Company Number: FR-GILEAD-2022-0608816

PATIENT
  Sex: Female
  Weight: 88 kg

DRUGS (1)
  1. SACITUZUMAB GOVITECAN [Suspect]
     Active Substance: SACITUZUMAB GOVITECAN
     Indication: Breast cancer metastatic
     Dosage: CYCLE 1, DAY 1, 8
     Route: 042
     Dates: start: 20221031, end: 20221107

REACTIONS (2)
  - Multiple organ dysfunction syndrome [Unknown]
  - Haemophagocytic lymphohistiocytosis [Unknown]
